FAERS Safety Report 6381727-1 (Version None)
Quarter: 2009Q3

REPORT INFORMATION
  Report Type: 
  Country: None (occurrence: None)
  Receive Date: 20090930
  Receipt Date: 20090918
  Transmission Date: 20100115
  Serious: Yes (Hospitalization, Other)
  Sender: FDA-Public Use
  Company Number: PHHY2009CA04691

PATIENT
  Sex: Male

DRUGS (1)
  1. SANDOSTATIN LAR [Suspect]
     Indication: HEPATIC NEOPLASM MALIGNANT
     Dosage: 30 MG, QMO
     Route: 030
     Dates: start: 20080919

REACTIONS (4)
  - BLOOD PRESSURE DIASTOLIC DECREASED [None]
  - FALL [None]
  - GASTRIC HAEMORRHAGE [None]
  - HYPERTENSION [None]
